FAERS Safety Report 5123962-6 (Version None)
Quarter: 2006Q4

REPORT INFORMATION
  Report Type: 
  Country: None (occurrence: None)
  Receive Date: 20061010
  Receipt Date: 20060327
  Transmission Date: 20070319
  Serious: Yes (Death, Other)
  Sender: FDA-Public Use
  Company Number: PHFR2006GB01244

PATIENT
  Age: 43 Year
  Sex: Male

DRUGS (6)
  1. CLOZARIL [Suspect]
     Indication: SCHIZOPHRENIA
     Dosage: 700 MG/DAY
     Route: 048
     Dates: start: 20031202
  2. AMISULPRIDE [Suspect]
     Indication: SCHIZOPHRENIA
     Dosage: 800MG / DAY
     Route: 048
  3. VALPROATE SODIUM [Concomitant]
     Indication: EPILEPSY
     Dosage: 800MG / DAY
     Route: 048
  4. ATENOLOL [Concomitant]
     Indication: HYPERTENSION
     Dosage: 25MG / DAY
     Route: 048
  5. DOCUSATE SODIUM [Concomitant]
     Indication: CONSTIPATION
     Dosage: 200MG / DAY
     Route: 048
  6. RANITIDINE [Concomitant]
     Indication: DYSPEPSIA
     Dosage: 150MG / DAY
     Route: 048

REACTIONS (9)
  - ASTHMA [None]
  - CARDIAC ARREST [None]
  - CIRCULATORY COLLAPSE [None]
  - CONSTIPATION [None]
  - DIABETES MELLITUS [None]
  - DYSPEPSIA [None]
  - HYPERCHOLESTEROLAEMIA [None]
  - HYPERTENSION [None]
  - WEIGHT INCREASED [None]
